FAERS Safety Report 18753590 (Version 1)
Quarter: 2021Q1

REPORT INFORMATION
  Report Type: Spontaneous
  Country: US (occurrence: US)
  Receive Date: 20210118
  Receipt Date: 20210118
  Transmission Date: 20210419
  Serious: Yes (Hospitalization, Other)
  Sender: FDA-Public Use
  Company Number: US-JNJFOC-20210114009

PATIENT
  Age: 69 Year
  Sex: Male

DRUGS (1)
  1. IBUPROFEN. [Suspect]
     Active Substance: IBUPROFEN
     Indication: ARTHRALGIA
     Dosage: DAILY IBUPROFEN USE (1200?1800MG/D) FOR 3 MONTHS
     Route: 065

REACTIONS (5)
  - Lymphocytic infiltration [Recovering/Resolving]
  - Glomerulonephritis minimal lesion [Recovering/Resolving]
  - Overdose [Unknown]
  - Nephropathy toxic [Recovering/Resolving]
  - Tubulointerstitial nephritis [Recovering/Resolving]
